FAERS Safety Report 11025717 (Version 1)
Quarter: 2015Q2

REPORT INFORMATION
  Report Type: Spontaneous
  Country: US (occurrence: US)
  Receive Date: 20150414
  Receipt Date: 20150414
  Transmission Date: 20150821
  Serious: No
  Sender: FDA-Public Use
  Company Number: US-ASTRAZENECA-2014SE28910

PATIENT
  Age: 70 Year
  Sex: Female

DRUGS (1)
  1. OMEPRAZOLE. [Suspect]
     Active Substance: OMEPRAZOLE
     Route: 048

REACTIONS (5)
  - Abdominal discomfort [Unknown]
  - Abdominal distension [Unknown]
  - Regurgitation [Unknown]
  - Flatulence [Unknown]
  - Drug ineffective [Unknown]
